FAERS Safety Report 7840933 (Version 3)
Quarter: 2015Q4

REPORT INFORMATION
  Report Type: Spontaneous
  Country: US (occurrence: US)
  Receive Date: 20110304
  Receipt Date: 20151204
  Transmission Date: 20160305
  Serious: Yes (Hospitalization)
  Sender: FDA-Public Use
  Company Number: US-BAYER-2011-020006

PATIENT
  Age: 33 Year
  Sex: Female
  Weight: 69.84 kg

DRUGS (1)
  1. YAZ [Suspect]
     Active Substance: DROSPIRENONE\ETHINYL ESTRADIOL
     Indication: CONTRACEPTION
     Dosage: UNK
     Route: 048
     Dates: start: 20081218, end: 20090302

REACTIONS (4)
  - Myocardial infarction [None]
  - Injury [None]
  - Stress cardiomyopathy [None]
  - Pain [None]

NARRATIVE: CASE EVENT DATE: 20091117
